FAERS Safety Report 5306307-8 (Version None)
Quarter: 2007Q2

REPORT INFORMATION
  Report Type: 
  Country: None (occurrence: None)
  Receive Date: 20070424
  Receipt Date: 20070417
  Transmission Date: 20071010
  Serious: Yes (Hospitalization)
  Sender: FDA-Public Use
  Company Number: FR-ABBOTT-07P-056-0365522-00

PATIENT
  Age: 52 Year
  Sex: Female

DRUGS (3)
  1. MONONAXY [Suspect]
     Indication: BRONCHITIS
     Route: 048
     Dates: start: 20070301, end: 20070301
  2. MUCOLYTIC AGENT [Concomitant]
     Indication: BRONCHITIS
  3. KINESITHERAPY [Concomitant]
     Indication: BRONCHITIS

REACTIONS (1)
  - LUNG DISORDER [None]
